FAERS Safety Report 24361511 (Version 1)
Quarter: 2024Q3

REPORT INFORMATION
  Report Type: Spontaneous
  Country: US (occurrence: US)
  Receive Date: 20240925
  Receipt Date: 20240925
  Transmission Date: 20241017
  Serious: No
  Sender: CELLTRION
  Company Number: US-CELLTRION INC.-2023US021971

PATIENT

DRUGS (1)
  1. INFLECTRA [Suspect]
     Active Substance: INFLIXIMAB-DYYB
     Indication: Colitis ulcerative
     Dosage: INFUSION 5MG/KG ON WEEK 0,2, AND 6 AND EVERY EIGHT WEEKS THEREAFTER; INTRAVENOUS
     Route: 042

REACTIONS (2)
  - Product container issue [Unknown]
  - Therapy interrupted [Unknown]
